FAERS Safety Report 24565372 (Version 1)
Quarter: 2024Q4

REPORT INFORMATION
  Report Type: Spontaneous
  Country: GB (occurrence: GB)
  Receive Date: 20241030
  Receipt Date: 20241030
  Transmission Date: 20250115
  Serious: Yes (Other)
  Sender: RANBAXY
  Company Number: GB-SUN PHARMACEUTICAL INDUSTRIES LTD-2024RR-475606

PATIENT
  Age: 41 Year
  Sex: Female

DRUGS (9)
  1. OCTREOTIDE [Suspect]
     Active Substance: OCTREOTIDE
     Indication: Neoplasm malignant
     Dosage: 100 MICROGRAM TDS SC
     Route: 065
  2. PREDNISOLONE [Suspect]
     Active Substance: PREDNISOLONE
     Indication: Neoplasm malignant
     Dosage: 30 MILLIGRAM, DAILY
     Route: 065
  3. HYDROCORTISONE [Suspect]
     Active Substance: HYDROCORTISONE
     Indication: Neoplasm malignant
     Dosage: UNK
     Route: 065
  4. DOXORUBICIN [Suspect]
     Active Substance: DOXORUBICIN
     Indication: Neoplasm malignant
     Dosage: 6 CYCLES
     Route: 065
  5. CISPLATIN [Suspect]
     Active Substance: CISPLATIN
     Indication: Neoplasm malignant
     Dosage: 6 CYCLES
     Route: 065
  6. MITOTANE [Suspect]
     Active Substance: MITOTANE
     Indication: Neoplasm malignant
     Dosage: 1 GRAM TDS
     Route: 065
  7. MITOTANE [Suspect]
     Active Substance: MITOTANE
     Dosage: 4 GRAM
  8. MITOTANE [Suspect]
     Active Substance: MITOTANE
     Dosage: 7 GRAM, DAILY
  9. ETOPOSIDE [Suspect]
     Active Substance: ETOPOSIDE
     Indication: Neoplasm malignant
     Dosage: 6 CYCLES
     Route: 065

REACTIONS (2)
  - Disease progression [Unknown]
  - Drug resistance [Unknown]
